FAERS Safety Report 10174107 (Version 3)
Quarter: 2014Q3

REPORT INFORMATION
  Report Type: Report from Study
  Country: JP (occurrence: JP)
  Receive Date: 20140515
  Receipt Date: 20140812
  Transmission Date: 20150326
  Serious: Yes (Other)
  Sender: FDA-Public Use
  Company Number: JP-BRISTOL-MYERS SQUIBB COMPANY-20723409

PATIENT
  Age: 91 Year
  Sex: Female
  Weight: 41 kg

DRUGS (9)
  1. ELIQUIS [Suspect]
     Active Substance: APIXABAN
     Indication: THROMBOSIS PROPHYLAXIS
     Dosage: 2.5MG BID 05-FEB-2014 TO 19-FEB-2014.
     Route: 048
     Dates: start: 20140205, end: 20140328
  2. LASIX [Suspect]
     Active Substance: FUROSEMIDE
     Indication: CARDIAC FAILURE
     Route: 048
     Dates: start: 20140206, end: 20140213
  3. CARDOVAL [Concomitant]
     Indication: CARDIAC FAILURE
     Route: 048
  4. MORPHINE HCL [Concomitant]
     Active Substance: MORPHINE HYDROCHLORIDE
     Indication: LUMBAR SPINAL STENOSIS
     Route: 048
  5. EQUAL [Concomitant]
     Indication: DIABETES MELLITUS
     Route: 048
  6. DIART [Suspect]
     Active Substance: AZOSEMIDE
     Indication: CARDIAC FAILURE
     Dosage: 60MG (20-FEB-2014 TO 28-MAR-2014),30MG (29-MAR-2014)
     Route: 048
     Dates: start: 20140214, end: 20140219
  7. AMIODARONE [Concomitant]
     Active Substance: AMIODARONE
     Route: 048
     Dates: start: 20140217
  8. ALDACTONE [Suspect]
     Active Substance: SPIRONOLACTONE
     Indication: CARDIAC FAILURE
     Route: 048
     Dates: start: 20140210
  9. PIMOBENDAN [Concomitant]
     Active Substance: PIMOBENDAN
     Indication: CARDIAC FAILURE
     Route: 048

REACTIONS (1)
  - Renal failure chronic [Recovering/Resolving]

NARRATIVE: CASE EVENT DATE: 20140219
